FAERS Safety Report 4333646-X (Version None)
Quarter: 2004Q2

REPORT INFORMATION
  Report Type: 
  Country: None (occurrence: None)
  Receive Date: 20040402
  Receipt Date: 20040325
  Transmission Date: 20050107
  Serious: Yes (Other)
  Sender: FDA-Public Use
  Company Number: HQWYE443803SEP03

PATIENT
  Age: 15 Year
  Sex: Female

DRUGS (1)
  1. MINOCYCLINE HCL [Suspect]
     Indication: ACNE

REACTIONS (14)
  - ANOREXIA [None]
  - ARTHRALGIA [None]
  - CARDIOLIPIN ANTIBODY POSITIVE [None]
  - LYMPHADENOPATHY [None]
  - MALAISE [None]
  - MYALGIA [None]
  - NEUTROPHIL PERCENTAGE INCREASED [None]
  - PLATELET COUNT INCREASED [None]
  - POLYARTERITIS NODOSA [None]
  - PURPURA [None]
  - PYREXIA [None]
  - RASH [None]
  - RED BLOOD CELL SEDIMENTATION RATE INCREASED [None]
  - WHITE BLOOD CELL COUNT INCREASED [None]
